FAERS Safety Report 12077496 (Version 3)
Quarter: 2016Q1

REPORT INFORMATION
  Report Type: Spontaneous
  Country: TR (occurrence: TR)
  Receive Date: 20160215
  Receipt Date: 20160216
  Transmission Date: 20160526
  Serious: Yes (Other)
  Sender: FDA-Public Use
  Company Number: TR-BAYER-2016-023490

PATIENT
  Age: 67 Year
  Sex: Male

DRUGS (1)
  1. ASPIRIN. [Suspect]
     Active Substance: ASPIRIN
     Indication: POOR QUALITY SLEEP

REACTIONS (7)
  - Unevaluable event [None]
  - Hypertension [None]
  - Prostatic disorder [None]
  - Diabetes mellitus [None]
  - Visual impairment [None]
  - Product use issue [None]
  - Epistaxis [None]

NARRATIVE: CASE EVENT DATE: 201601
